FAERS Safety Report 5153046-2 (Version None)
Quarter: 2006Q4

REPORT INFORMATION
  Report Type: 
  Country: None (occurrence: None)
  Receive Date: 20061117
  Receipt Date: 20061107
  Transmission Date: 20070319
  Serious: Yes (Other)
  Sender: FDA-Public Use
  Company Number: PHEH2006US13835

PATIENT
  Sex: Female

DRUGS (13)
  1. ZOMETA [Suspect]
     Indication: BREAST CANCER METASTATIC
     Dosage: 4 MG, QMO
     Dates: start: 20050605, end: 20060501
  2. FEMARA [Concomitant]
  3. LOVENOX [Concomitant]
     Dosage: UNK, QD
  4. CARDIZEM [Concomitant]
  5. CALCIUM W/VITAMIN D NOS [Concomitant]
  6. RITUXAN [Concomitant]
  7. CYTOXAN [Concomitant]
  8. DETROL [Concomitant]
  9. FLOMAX [Concomitant]
  10. TOPROL-XL [Concomitant]
  11. LASIX [Concomitant]
  12. ACIDOPHILUS [Concomitant]
  13. PROCRIT                            /00909301/ [Concomitant]
     Dosage: UNK, QW

REACTIONS (2)
  - BONE DISORDER [None]
  - OSTEONECROSIS [None]
